FAERS Safety Report 7015444-1 (Version None)
Quarter: 2010Q3

REPORT INFORMATION
  Report Type: 
  Country: None (occurrence: None)
  Receive Date: 20100927
  Receipt Date: 20100915
  Transmission Date: 20110219
  Serious: Yes (Hospitalization)
  Sender: FDA-Public Use
  Company Number: US-ELI_LILLY_AND_COMPANY-US201007002540

PATIENT
  Sex: Female

DRUGS (7)
  1. FORTEO [Suspect]
     Indication: OSTEOPOROSIS
     Dosage: 20 UG, DAILY (1/D)
     Route: 065
  2. VERAPAMIL [Concomitant]
     Dosage: 180 MG, UNK
  3. HYDROXYCHLOROQUINE [Concomitant]
     Dosage: 200 MG, UNK
  4. VITAMIN D [Concomitant]
     Dosage: 50000 U, WEEKLY (1/W)
  5. ASPIRIN [Concomitant]
     Dosage: 325 MG, DAILY (1/D)
  6. ENALAPRIL [Concomitant]
     Dosage: 20 MG, UNK
  7. HYDROCHLOROTHIAZIDE [Concomitant]
     Dosage: 12.5 MG, UNK

REACTIONS (6)
  - BACK PAIN [None]
  - BLOOD CALCIUM INCREASED [None]
  - HIP ARTHROPLASTY [None]
  - HYPOAESTHESIA [None]
  - JOINT SWELLING [None]
  - PAIN IN EXTREMITY [None]
